FAERS Safety Report 7608703-2 (Version None)
Quarter: 2011Q3

REPORT INFORMATION
  Report Type: 
  Country: None (occurrence: None)
  Receive Date: 20110714
  Receipt Date: 20110706
  Transmission Date: 20111222
  Serious: Yes (Other)
  Sender: FDA-Public Use
  Company Number: US-BAYER-2011-058805

PATIENT
  Age: 7 Month
  Sex: Female

DRUGS (2)
  1. YAZ [Suspect]
     Dosage: UNK
     Route: 048
     Dates: start: 20101201
  2. YAZ [Suspect]
     Dosage: UNK
     Route: 048
     Dates: start: 20101201

REACTIONS (1)
  - VAGINAL HAEMORRHAGE [None]
